FAERS Safety Report 5839386-X (Version None)
Quarter: 2008Q3

REPORT INFORMATION
  Report Type: 
  Country: None (occurrence: None)
  Receive Date: 20080806
  Receipt Date: 20080725
  Transmission Date: 20090109
  Serious: Yes (Other)
  Sender: FDA-Public Use
  Company Number: 19774

PATIENT

DRUGS (2)
  1. METHOTREXATE SODIUM [Suspect]
     Dates: start: 20061201, end: 20080401
  2. ENBREL [Suspect]
     Dosage: 50 MG
     Dates: start: 20061201, end: 20080401

REACTIONS (1)
  - PALPITATIONS [None]
